FAERS Safety Report 15774154 (Version 1)
Quarter: 2018Q4

REPORT INFORMATION
  Report Type: Spontaneous
  Country: GB (occurrence: GB)
  Receive Date: 20181229
  Receipt Date: 20181229
  Transmission Date: 20190205
  Serious: Yes (Other)
  Sender: FDA-Public Use
  Company Number: GB-DRREDDYS-GER/UKI/18/0106488

PATIENT
  Age: 73 Year
  Sex: Male

DRUGS (1)
  1. OMEPRAZOLE. [Suspect]
     Active Substance: OMEPRAZOLE
     Indication: DYSPEPSIA
     Dosage: 20 MG DAILY FOR MORE THAN 2 YEARS
     Route: 048

REACTIONS (3)
  - Hypocalcaemia [Recovered/Resolved]
  - Electrocardiogram QT prolonged [Unknown]
  - Hypomagnesaemia [Recovered/Resolved]
